FAERS Safety Report 23672907 (Version 2)
Quarter: 2024Q2

REPORT INFORMATION
  Report Type: Report from Study
  Country: US (occurrence: US)
  Receive Date: 20240326
  Receipt Date: 20240405
  Transmission Date: 20240716
  Serious: Yes (Other)
  Sender: FDA-Public Use
  Company Number: US-AURINIA PHARMACEUTICALS INC.-AUR-004047

PATIENT
  Age: 48 Year
  Sex: Male

DRUGS (5)
  1. LUPKYNIS [Suspect]
     Active Substance: VOCLOSPORIN
     Indication: Lupus nephritis
     Dosage: 23.7 MILLIGRAM, BID
     Route: 048
     Dates: start: 20221013
  2. LUPKYNIS [Suspect]
     Active Substance: VOCLOSPORIN
     Dosage: 23.7 MILLIGRAM, BID
     Route: 048
  3. LUPKYNIS [Suspect]
     Active Substance: VOCLOSPORIN
     Dosage: 23.7 MILLIGRAM, BID
     Route: 048
     Dates: start: 20230822
  4. CELLCEPT [Suspect]
     Active Substance: MYCOPHENOLATE MOFETIL
     Indication: Product used for unknown indication
  5. CELLCEPT [Suspect]
     Active Substance: MYCOPHENOLATE MOFETIL
     Dosage: 1000 MILLIGRAM, BID

REACTIONS (16)
  - Blood creatinine increased [Unknown]
  - Hyperkalaemia [Unknown]
  - Glomerular filtration rate decreased [Unknown]
  - Blood urea nitrogen/creatinine ratio increased [Unknown]
  - Blood uric acid increased [Unknown]
  - Full blood count abnormal [Unknown]
  - Carbon dioxide abnormal [Unknown]
  - Blood potassium increased [Unknown]
  - Urine albumin/creatinine ratio increased [Unknown]
  - Double stranded DNA antibody positive [Unknown]
  - Antinuclear antibody positive [Unknown]
  - COVID-19 [Unknown]
  - Urine abnormality [Unknown]
  - Metabolic acidosis [Unknown]
  - Hypovolaemia [Unknown]
  - Diarrhoea [Recovering/Resolving]

NARRATIVE: CASE EVENT DATE: 20230715
